FAERS Safety Report 8230778 (Version 2)
Quarter: 2012Q4

REPORT INFORMATION
  Report Type: 
  Country: US (occurrence: US)
  Receive Date: 20111106
  Receipt Date: 20121107
  Transmission Date: 20130627
  Serious: No
  Sender: FDA-Public Use
  Company Number: US-AMGEN-USASP2011043527

PATIENT
  Age: 47 Year
  Sex: Female

DRUGS (8)
  1. ENBREL [Suspect]
     Indication: RHEUMATOID ARTHRITIS
     Dosage: 50 mg, qwk
     Dates: start: 20110816
  2. METHOTREXATE [Concomitant]
     Dosage: 2.5 mg, UNK
  3. PREDNISONE [Concomitant]
     Dosage: 1 mg, UNK
  4. HYDROXYZINE HCL [Concomitant]
     Dosage: 10 mg, UNK
  5. FOLIC ACID [Concomitant]
     Dosage: 1 mg, UNK
  6. MULTIVITAMIN                       /00097801/ [Concomitant]
  7. BUFFERIN                           /00002701/ [Concomitant]
     Dosage: 325 mg, UNK
  8. CALCIUM + VIT D [Concomitant]

REACTIONS (4)
  - Sinus congestion [Not Recovered/Not Resolved]
  - Headache [Not Recovered/Not Resolved]
  - Pyrexia [Not Recovered/Not Resolved]
  - Sinusitis [Unknown]
